FAERS Safety Report 14268785 (Version 1)
Quarter: 2017Q4

REPORT INFORMATION
  Report Type: Spontaneous
  Country: US (occurrence: US)
  Receive Date: 20171211
  Receipt Date: 20171211
  Transmission Date: 20180321
  Serious: Yes (Hospitalization, Other)
  Sender: FDA-Public Use
  Company Number: US-PFIZER INC-2017528072

PATIENT
  Age: 52 Year
  Sex: Female

DRUGS (3)
  1. METHOTREXATE SODIUM. [Suspect]
     Active Substance: METHOTREXATE SODIUM
     Dosage: UNK
     Route: 065
     Dates: start: 201707
  2. ENBREL [Suspect]
     Active Substance: ETANERCEPT
     Indication: RHEUMATOID ARTHRITIS
     Dosage: 50 MG, QWK
     Route: 058
  3. LEFLUNOMIDE. [Suspect]
     Active Substance: LEFLUNOMIDE
     Dosage: UNK
     Route: 065
     Dates: start: 201707

REACTIONS (7)
  - Dysgeusia [Unknown]
  - Rash generalised [Unknown]
  - Depression [Unknown]
  - Alopecia [Not Recovered/Not Resolved]
  - Dyspepsia [Not Recovered/Not Resolved]
  - Coma [Unknown]
  - Crying [Unknown]

NARRATIVE: CASE EVENT DATE: 2017
